FAERS Safety Report 8334387-4 (Version None)
Quarter: 2012Q2

REPORT INFORMATION
  Report Type: 
  Country: None (occurrence: None)
  Receive Date: 20120503
  Receipt Date: 20110315
  Transmission Date: 20120825
  Serious: No
  Sender: FDA-Public Use
  Company Number: US-TEVA-2011001232

PATIENT
  Sex: Female
  Weight: 88.53 kg

DRUGS (2)
  1. NUVIGIL [Suspect]
     Dosage: 100 MILLIGRAM;
     Route: 048
     Dates: start: 20110301
  2. NUVIGIL [Suspect]
     Indication: SOMNOLENCE
     Dosage: 150 MILLIGRAM;
     Route: 048
     Dates: start: 20101201, end: 20110301

REACTIONS (3)
  - NERVOUSNESS [None]
  - DRUG DISPENSING ERROR [None]
  - ANXIETY [None]
